FAERS Safety Report 18265431 (Version 2)
Quarter: 2020Q4

REPORT INFORMATION
  Report Type: Spontaneous
  Country: US (occurrence: US)
  Receive Date: 20200915
  Receipt Date: 20201110
  Transmission Date: 20210113
  Serious: Yes (Other)
  Sender: FDA-Public Use
  Company Number: US-BEH-2020122303

PATIENT
  Sex: Female

DRUGS (2)
  1. HIZENTRA [Suspect]
     Active Substance: HUMAN IMMUNOGLOBULIN G
     Indication: ILLNESS
  2. HIZENTRA [Suspect]
     Active Substance: HUMAN IMMUNOGLOBULIN G
     Indication: IMMUNODEFICIENCY COMMON VARIABLE
     Dosage: 34 GRAM, QOW
     Route: 058
     Dates: start: 20200625

REACTIONS (7)
  - Peripheral swelling [Unknown]
  - Chronic lymphocytic leukaemia [Unknown]
  - Joint swelling [Unknown]
  - Product use in unapproved indication [Unknown]
  - Headache [Unknown]
  - Pruritus [Unknown]
  - No adverse event [Unknown]
